FAERS Safety Report 25985567 (Version 1)
Quarter: 2025Q4

REPORT INFORMATION
  Report Type: Spontaneous
  Country: CN (occurrence: CN)
  Receive Date: 20251101
  Receipt Date: 20251101
  Transmission Date: 20260118
  Serious: Yes (Hospitalization)
  Sender: ACCORD
  Company Number: CN-MLMSERVICE-20251010-PI672309-00218-1

PATIENT
  Age: 55 Year
  Sex: Female

DRUGS (3)
  1. METHOTREXATE [Suspect]
     Active Substance: METHOTREXATE
     Indication: Ankylosing spondylitis
     Dates: start: 2013
  2. TOFACITINIB [Suspect]
     Active Substance: TOFACITINIB
     Indication: Ankylosing spondylitis
     Dates: start: 2013
  3. RECOMBINANT HUMAN INTERFERON ALFA 2A [Concomitant]
     Indication: Thrombolysis

REACTIONS (1)
  - Rocky mountain spotted fever [Recovered/Resolved]

NARRATIVE: CASE EVENT DATE: 20200801
